FAERS Safety Report 16929537 (Version 1)
Quarter: 2019Q4

REPORT INFORMATION
  Report Type: Spontaneous
  Country: DK (occurrence: DK)
  Receive Date: 20191017
  Receipt Date: 20191017
  Transmission Date: 20200122
  Serious: Yes (Hospitalization)
  Sender: FDA-Public Use
  Company Number: DK-ACCORD-158045

PATIENT
  Age: 55 Year
  Sex: Female

DRUGS (10)
  1. CHAMPIX [Concomitant]
     Active Substance: VARENICLINE TARTRATE
     Indication: EX-TOBACCO USER
     Dosage: STRENGTH: 1 MG
     Route: 048
     Dates: start: 20190717
  2. NYSTATIN. [Concomitant]
     Active Substance: NYSTATIN
     Indication: ORAL CANDIDIASIS
     Dosage: STRENGTH: 100.000 IU / ML
     Route: 048
     Dates: start: 20190927
  3. CARBOPLATIN ACCORD [Suspect]
     Active Substance: CARBOPLATIN
     Indication: NON-SMALL CELL LUNG CANCER
     Dosage: STRENGTH: 10 MG / ML
     Route: 042
     Dates: start: 20190923
  4. NIDDAZOL [Interacting]
     Active Substance: ITRACONAZOLE
     Indication: ORAL CANDIDIASIS
     Dosage: DOSAGE: 100 MG
     Route: 048
     Dates: start: 20190916, end: 20190928
  5. AKYNZEO [Interacting]
     Active Substance: NETUPITANT\PALONOSETRON HYDROCHLORIDE
     Indication: PROPHYLAXIS OF NAUSEA AND VOMITING
     Dosage: STRENGTH: 300 MG / 0.5 MG. DOSE: 1 CAPSULE 1 HOUR BEFORE?CARBOPLATIN AND NAVELBINE TREATMENT.
     Route: 048
     Dates: start: 20190923
  6. BENDROZA [Concomitant]
     Active Substance: BENDROFLUMETHIAZIDE\POTASSIUM CHLORIDE
     Indication: DIURETIC THERAPY
     Dosage: STRENGTH: 1.25 + 375 MG
     Route: 048
     Dates: start: 20190729
  7. MORFIN DAK [Concomitant]
     Active Substance: MORPHINE HYDROCHLORIDE
     Indication: PAIN
     Dosage: STRENGTH: 10 MG. DOSE: 5 MG IF NEEDED, NO MORE THAN 6 TIMES DAILY
     Route: 048
     Dates: start: 20190927
  8. PREDNISOLONE. [Concomitant]
     Active Substance: PREDNISOLONE
     Indication: ADRENOCORTICAL STEROID THERAPY
     Dosage: STRENGTH: 50 MG. DOSAGE: 50 MG 1 HOUR BEFORE CARBOPLATIN AND?NAVELBINE TREATMENT
     Route: 048
     Dates: start: 20190923
  9. NAVELBINE [Interacting]
     Active Substance: VINORELBINE TARTRATE
     Indication: NON-SMALL CELL LUNG CANCER
     Dosage: STRENGTH: 80 MG. DOSAGE: 160 MG ON 23 SEP-2019
     Route: 048
     Dates: start: 20190923
  10. LIDOCAINE ACCORD [Concomitant]
     Indication: PAIN
     Dosage: STRENGTH: 20 MG / ML. DOSE: 5 ML IF NEEDED, NO MORE THAN 6 TIMES DAILY
     Route: 048
     Dates: start: 20190927

REACTIONS (6)
  - Drug interaction [Unknown]
  - Leukopenia [Not Recovered/Not Resolved]
  - Dehydration [Not Recovered/Not Resolved]
  - Pyrexia [Not Recovered/Not Resolved]
  - Constipation [Not Recovered/Not Resolved]
  - Stomatitis [Not Recovered/Not Resolved]

NARRATIVE: CASE EVENT DATE: 201909
